FAERS Safety Report 4948356-5 (Version None)
Quarter: 2006Q1

REPORT INFORMATION
  Report Type: 
  Country: None (occurrence: None)
  Receive Date: 20060320
  Receipt Date: 20060309
  Transmission Date: 20060701
  Serious: Yes (Hospitalization, Other)
  Sender: FDA-Public Use
  Company Number: GB-BRISTOL-MYERS SQUIBB COMPANY-13316955

PATIENT
  Age: 68 Year
  Sex: Male

DRUGS (7)
  1. SINEMET [Suspect]
     Route: 048
  2. TRIMETHOPRIM [Suspect]
     Route: 048
     Dates: start: 20060127, end: 20060130
  3. ATORVASTATIN CALCIUM [Suspect]
     Route: 048
  4. PRAMIPEXOLE HCL [Suspect]
     Route: 048
  5. ASPIRIN [Concomitant]
  6. AMLODIPINE BESYLATE [Concomitant]
  7. ATENOLOL [Concomitant]

REACTIONS (2)
  - CHOLESTASIS [None]
  - JAUNDICE [None]
